FAERS Safety Report 4423725-0 (Version None)
Quarter: 2004Q3

REPORT INFORMATION
  Report Type: 
  Country: None (occurrence: None)
  Receive Date: 20040811
  Receipt Date: 20030929
  Transmission Date: 20050211
  Serious: Yes (Other)
  Sender: FDA-Public Use
  Company Number: US-MERCK-0310USA00069

PATIENT
  Age: 53 Year
  Sex: Male
  Weight: 128 kg

DRUGS (10)
  1. ASPIRIN [Concomitant]
     Route: 065
  2. CAPOTEN [Concomitant]
     Route: 065
  3. COLACE [Concomitant]
     Route: 065
  4. [THERAPY UNSPECIFIED] [Concomitant]
     Indication: BLOOD PRESSURE
     Route: 065
  5. EXTRA STRENGTH TYLENOL [Concomitant]
     Indication: PAIN
     Route: 065
     Dates: start: 19980101
  6. COMBIVENT [Concomitant]
     Route: 055
  7. CARDURA [Concomitant]
     Route: 065
  8. ESIDRIX [Concomitant]
     Route: 065
  9. VIOXX [Suspect]
     Indication: PAIN
     Route: 048
     Dates: start: 19990101
  10. VERELAN [Concomitant]
     Route: 065

REACTIONS (26)
  - ARTHROPATHY [None]
  - BLOOD ALBUMIN DECREASED [None]
  - BLOOD CHLORIDE DECREASED [None]
  - BLOOD CHOLESTEROL INCREASED [None]
  - BLOOD GLUCOSE INCREASED [None]
  - BLOOD PRESSURE INCREASED [None]
  - BODY TEMPERATURE DECREASED [None]
  - CEREBROVASCULAR ACCIDENT [None]
  - CHEST PAIN [None]
  - DIZZINESS [None]
  - DYSPNOEA [None]
  - EMPHYSEMA [None]
  - GASTRIC DISORDER [None]
  - HAEMATOCHEZIA [None]
  - HAEMATOCRIT DECREASED [None]
  - HAEMOGLOBIN DECREASED [None]
  - HEADACHE [None]
  - HYPERHIDROSIS [None]
  - HYPERTENSION [None]
  - JOINT RANGE OF MOTION DECREASED [None]
  - KNEE DEFORMITY [None]
  - LOCALISED OSTEOARTHRITIS [None]
  - NAUSEA [None]
  - OPTIC ISCHAEMIC NEUROPATHY [None]
  - OXYGEN SATURATION DECREASED [None]
  - PLATELET COUNT INCREASED [None]
